FAERS Safety Report 19597820 (Version 1)
Quarter: 2021Q3

REPORT INFORMATION
  Report Type: Report from Study
  Country: US (occurrence: US)
  Receive Date: 20210723
  Receipt Date: 20210723
  Transmission Date: 20211014
  Serious: Yes (Hospitalization)
  Sender: FDA-Public Use
  Company Number: US-ASTRAZENECA-2021A623247

PATIENT
  Sex: Female
  Weight: 75.8 kg

DRUGS (1)
  1. ONGLYZA [Suspect]
     Active Substance: SAXAGLIPTIN HYDROCHLORIDE
     Indication: CARDIAC DISORDER
     Dosage: GENERIC
     Route: 048
     Dates: start: 2017

REACTIONS (4)
  - Pharyngeal swelling [Unknown]
  - Pruritus [Unknown]
  - Drug hypersensitivity [Unknown]
  - Product dose omission issue [Not Recovered/Not Resolved]
